FAERS Safety Report 4733906-4 (Version None)
Quarter: 2005Q3

REPORT INFORMATION
  Report Type: 
  Country: None (occurrence: None)
  Receive Date: 20050729
  Receipt Date: 20050722
  Transmission Date: 20060218
  Serious: Yes (Death)
  Sender: FDA-Public Use
  Company Number: A0539355A

PATIENT
  Age: 35 Year
  Sex: Male
  Weight: 61.6892 kg

DRUGS (1)
  1. PAXIL [Suspect]
     Indication: DEPRESSION
     Dosage: 20 MG / PER DAY / ORAL
     Route: 048
     Dates: start: 20020518, end: 20020501

REACTIONS (7)
  - ASPIRATION [None]
  - CARDIAC ARREST [None]
  - CHILLS [None]
  - COMPLETED SUICIDE [None]
  - FEELING ABNORMAL [None]
  - GUN SHOT WOUND [None]
  - LIVIDITY [None]
